FAERS Safety Report 5939498-6 (Version None)
Quarter: 2008Q4

REPORT INFORMATION
  Report Type: 
  Country: None (occurrence: None)
  Receive Date: 20081030
  Receipt Date: 20081020
  Transmission Date: 20090506
  Serious: Yes (Other)
  Sender: FDA-Public Use
  Company Number: 2008S1010373

PATIENT
  Age: 52 Year
  Sex: Male

DRUGS (1)
  1. PHOSPHPSODA FLAVOR NOT SPECIFIED [Suspect]
     Indication: COLONOSCOPY
     Dates: start: 20030701, end: 20030701

REACTIONS (2)
  - HYPERKALAEMIA [None]
  - RENAL FAILURE [None]
